FAERS Safety Report 9391750 (Version 2)
Quarter: 2013Q4

REPORT INFORMATION
  Report Type: Spontaneous
  Country: GB (occurrence: GB)
  Receive Date: 20130709
  Receipt Date: 20131108
  Transmission Date: 20140711
  Serious: Yes (Other)
  Sender: FDA-Public Use
  Company Number: GB-TEVA-416549ISR

PATIENT
  Age: 86 Year
  Sex: Male
  Weight: 82.5 kg

DRUGS (8)
  1. DONEPEZIL [Suspect]
     Indication: DEMENTIA
     Route: 048
     Dates: start: 20130603, end: 20130609
  2. ASPIRIN [Concomitant]
     Route: 048
  3. THYROXINE [Concomitant]
     Route: 048
  4. MST CONTINUS [Concomitant]
     Dosage: 30 MILLIGRAM DAILY; 20MG MORNING, 10MG AT NIGHT
     Route: 048
  5. SIMVASTATIN [Concomitant]
     Route: 048
  6. NAPROSYN [Concomitant]
     Dosage: 2 DOSAGE FORMS DAILY;
     Route: 048
  7. DOSULEPIN [Concomitant]
     Dosage: 50 MILLIGRAM DAILY; AT NIGHT
     Route: 048
  8. SODIUM VALPROATE [Concomitant]
     Dosage: 200 MILLIGRAM DAILY;
     Route: 048

REACTIONS (2)
  - Nightmare [Recovered/Resolved]
  - Hallucination [Recovered/Resolved]
